FAERS Safety Report 6331056-7 (Version None)
Quarter: 2009Q3

REPORT INFORMATION
  Report Type: 
  Country: None (occurrence: None)
  Receive Date: 20090827
  Receipt Date: 20090819
  Transmission Date: 20100115
  Serious: Yes (Hospitalization)
  Sender: FDA-Public Use
  Company Number: B0579691A

PATIENT
  Sex: Male

DRUGS (5)
  1. LAMICTAL [Suspect]
     Indication: EPILEPSY
     Route: 048
     Dates: start: 20090523, end: 20090611
  2. LEXIN [Concomitant]
     Indication: CONVULSION PROPHYLAXIS
     Route: 048
     Dates: start: 20080527
  3. EXCEGRAN [Concomitant]
     Indication: CONVULSION PROPHYLAXIS
     Dosage: 100MG PER DAY
     Route: 048
     Dates: start: 20081226, end: 20090522
  4. TEGRETOL [Concomitant]
     Dosage: 600MG PER DAY
     Route: 048
  5. PREDNISOLONE [Concomitant]
     Route: 065

REACTIONS (5)
  - DRUG RASH WITH EOSINOPHILIA AND SYSTEMIC SYMPTOMS [None]
  - HEPATIC FUNCTION ABNORMAL [None]
  - JAUNDICE [None]
  - PYREXIA [None]
  - RASH [None]
